FAERS Safety Report 5171172-9 (Version None)
Quarter: 2006Q4

REPORT INFORMATION
  Report Type: 
  Country: None (occurrence: None)
  Receive Date: 20061208
  Receipt Date: 20061208
  Transmission Date: 20070319
  Serious: Yes (Hospitalization)
  Sender: FDA-Public Use
  Company Number: None

PATIENT
  Age: 58 Year
  Sex: Male
  Weight: 67.9035 kg

DRUGS (1)
  1. LISINOPRIL [Suspect]
     Indication: HYPERTENSION
     Dosage: 40 MG, QDAY, PO
     Route: 048
     Dates: start: 20051031, end: 20060927

REACTIONS (3)
  - ANGIONEUROTIC OEDEMA [None]
  - LIP SWELLING [None]
  - TREATMENT NONCOMPLIANCE [None]
